FAERS Safety Report 9287793 (Version 1)
Quarter: 2013Q2

REPORT INFORMATION
  Report Type: Spontaneous
  Country: US (occurrence: US)
  Receive Date: 20130514
  Receipt Date: 20130514
  Transmission Date: 20140414
  Serious: No
  Sender: FDA-Public Use
  Company Number: US-PFIZER INC-2013144966

PATIENT
  Age: 58 Year
  Sex: Female
  Weight: 61.68 kg

DRUGS (2)
  1. ESTRING [Suspect]
     Indication: HORMONE THERAPY
     Dosage: UNK
     Route: 067
     Dates: start: 2012, end: 20130505
  2. ESTRING [Suspect]
     Indication: POSTMENOPAUSE

REACTIONS (2)
  - Vulvovaginal mycotic infection [Recovered/Resolved]
  - Vulvovaginal discomfort [Recovered/Resolved]
